FAERS Safety Report 4906105-0 (Version None)
Quarter: 2006Q1

REPORT INFORMATION
  Report Type: 
  Country: None (occurrence: None)
  Receive Date: 20060209
  Receipt Date: 20060111
  Transmission Date: 20060701
  Serious: Yes (Other)
  Sender: FDA-Public Use
  Company Number: PHNR2006AU00465

PATIENT
  Age: 35 Year
  Sex: Male

DRUGS (4)
  1. CLOZARIL [Suspect]
     Indication: SCHIZOPHRENIA
     Dosage: 0 - 475 MG/DAY
     Dates: start: 19940808
  2. FLUVOXAMINE MALEATE [Suspect]
     Indication: DEPRESSION
     Dosage: 150 MG
  3. FLUVOXAMINE MALEATE [Suspect]
     Dosage: 100 MG
  4. FLUVOXAMINE MALEATE [Suspect]
     Dosage: 50 MG
     Dates: start: 20060119

REACTIONS (8)
  - ATRIAL HYPERTROPHY [None]
  - BUNDLE BRANCH BLOCK [None]
  - DEPRESSION [None]
  - DRUG INTERACTION [None]
  - DRUG LEVEL DECREASED [None]
  - DRUG LEVEL INCREASED [None]
  - OBSESSIVE-COMPULSIVE DISORDER [None]
  - SINUS TACHYCARDIA [None]
